FAERS Safety Report 10044474 (Version 2)
Quarter: 2014Q1

REPORT INFORMATION
  Report Type: Report from Study
  Country: DE (occurrence: DE)
  Receive Date: 20140328
  Receipt Date: 20140328
  Transmission Date: 20141002
  Serious: Yes (Hospitalization)
  Sender: FDA-Public Use
  Company Number: DE-ABBVIE-13P-062-1079548-00

PATIENT
  Age: 58 Year
  Sex: Female

DRUGS (8)
  1. PREDNISOLONE [Concomitant]
     Indication: PSORIASIS
     Dosage: 5MG DAILY
  2. PREDNISOLONE [Concomitant]
     Indication: PSORIATIC ARTHROPATHY
  3. ARCOXIA [Concomitant]
     Indication: PSORIASIS
  4. ARCOXIA [Concomitant]
     Indication: PSORIATIC ARTHROPATHY
  5. METAMIZOLE [Concomitant]
     Indication: PRODUCT USED FOR UNKNOWN INDICATION
     Dosage: UNKNOWN
  6. IBUPROFEN [Concomitant]
     Indication: PRODUCT USED FOR UNKNOWN INDICATION
     Dosage: UNKNOWN
  7. HUMIRA [Suspect]
     Indication: PSORIASIS
     Route: 058
     Dates: start: 20130116, end: 20130313
  8. HUMIRA [Suspect]
     Indication: PSORIATIC ARTHROPATHY

REACTIONS (4)
  - Joint swelling [Recovered/Resolved]
  - Psoriatic arthropathy [Recovered/Resolved]
  - Arthralgia [Recovered/Resolved]
  - General physical health deterioration [Recovered/Resolved]
